FAERS Safety Report 7648845-9 (Version None)
Quarter: 2011Q3

REPORT INFORMATION
  Report Type: 
  Country: None (occurrence: None)
  Receive Date: 20110801
  Receipt Date: 20110722
  Transmission Date: 20111222
  Serious: Yes (Hospitalization)
  Sender: FDA-Public Use
  Company Number: PHHY2011SG67309

PATIENT
  Age: 12 Year
  Sex: Female

DRUGS (2)
  1. HYDROCORTISONE [Suspect]
     Indication: ERYTHEMA MULTIFORME
     Route: 042
  2. PREDNISOLONE [Suspect]
     Indication: ERYTHEMA MULTIFORME
     Dosage: UNK

REACTIONS (17)
  - HYPERKERATOSIS [None]
  - PYREXIA [None]
  - CHEILITIS [None]
  - STEVENS-JOHNSON SYNDROME [None]
  - SYSTEMIC LUPUS ERYTHEMATOSUS [None]
  - SKIN LESION [None]
  - PLEURAL EFFUSION [None]
  - SKIN EROSION [None]
  - CARDIOMEGALY [None]
  - OEDEMA [None]
  - BLISTER [None]
  - MOUTH ULCERATION [None]
  - ERYTHEMA [None]
  - CONJUNCTIVITIS [None]
  - PERICARDIAL EFFUSION [None]
  - PROTEINURIA [None]
  - RASH [None]
